FAERS Safety Report 23396597 (Version 1)
Quarter: 2024Q1

REPORT INFORMATION
  Report Type: Spontaneous
  Country: US (occurrence: US)
  Receive Date: 20240112
  Receipt Date: 20240112
  Transmission Date: 20240410
  Serious: No
  Sender: FDA-Public Use
  Company Number: US-ENZYVANT THERAPEUTICS, INC.-US2023ENZ00035

PATIENT
  Age: 4 Year
  Sex: Male
  Weight: 19.6 kg

DRUGS (2)
  1. RETHYMIC [Suspect]
     Active Substance: ALLOGENIC THYMOCYTE-DEPLETED THYMUS TISSUE-AGDC
     Indication: DiGeorge^s syndrome
     Dosage: 33 SLICES (9445 MM2/M2), SINGLE
     Dates: start: 20230912, end: 20230912
  2. LAPINE T-LYMPHOCYTE IMMUNE GLOBULIN [Concomitant]
     Active Substance: LAPINE T-LYMPHOCYTE IMMUNE GLOBULIN
     Indication: Immunosuppression
     Route: 065

REACTIONS (1)
  - Human herpesvirus 6 infection [Not Recovered/Not Resolved]

NARRATIVE: CASE EVENT DATE: 20230925
